FAERS Safety Report 25109802 (Version 1)
Quarter: 2025Q1

REPORT INFORMATION
  Report Type: Spontaneous
  Country: CN (occurrence: CN)
  Receive Date: 20250324
  Receipt Date: 20250324
  Transmission Date: 20250409
  Serious: Yes (Other)
  Sender: Haleon PLC
  Company Number: CN-HALEON-2233656

PATIENT
  Age: 60 Year
  Sex: Male
  Weight: 77 kg

DRUGS (2)
  1. VOLTAREN [Suspect]
     Active Substance: DICLOFENAC SODIUM
     Indication: Gout
     Route: 048
     Dates: start: 20241218, end: 20241225
  2. AMOXICILLIN [Suspect]
     Active Substance: AMOXICILLIN
     Indication: Gout
     Route: 048
     Dates: start: 20241218, end: 20241225

REACTIONS (6)
  - Diplopia [Recovered/Resolved]
  - Liver injury [Recovered/Resolved]
  - Gamma-glutamyltransferase increased [Recovered/Resolved]
  - Blood alkaline phosphatase increased [Recovered/Resolved]
  - Alanine aminotransferase increased [Recovered/Resolved]
  - Aspartate aminotransferase increased [Recovered/Resolved]

NARRATIVE: CASE EVENT DATE: 20241225
